FAERS Safety Report 5008909-5 (Version None)
Quarter: 2006Q2

REPORT INFORMATION
  Report Type: 
  Country: None (occurrence: None)
  Receive Date: 20060404
  Receipt Date: 20051102
  Transmission Date: 20061013
  Serious: No
  Sender: FDA-Public Use
  Company Number: USA0511112619

PATIENT
  Age: 43 Year
  Sex: Female

DRUGS (2)
  1. CYMBALTA [Suspect]
     Indication: MIGRAINE
     Dosage: 20 MG, DAILY(1/D)
     Dates: start: 20050801, end: 20050930
  2. PINDOLOL [Concomitant]

REACTIONS (2)
  - FLUSHING [None]
  - NASAL CONGESTION [None]
